FAERS Safety Report 6992615-1 (Version None)
Quarter: 2010Q3

REPORT INFORMATION
  Report Type: 
  Country: None (occurrence: None)
  Receive Date: 20100917
  Receipt Date: 20100910
  Transmission Date: 20110219
  Serious: Yes (Other)
  Sender: FDA-Public Use
  Company Number: US-ROCHE-727203

PATIENT
  Sex: Male

DRUGS (2)
  1. AVASTIN [Suspect]
     Route: 065
     Dates: start: 20100903
  2. TAXOL [Suspect]
     Route: 065
     Dates: start: 20100903

REACTIONS (2)
  - COLOUR BLINDNESS ACQUIRED [None]
  - SCOTOMA [None]
